FAERS Safety Report 9572153 (Version 1)
Quarter: 2013Q4

REPORT INFORMATION
  Report Type: Spontaneous
  Country: US (occurrence: US)
  Receive Date: 20131001
  Receipt Date: 20131001
  Transmission Date: 20140711
  Serious: No
  Sender: FDA-Public Use
  Company Number: US-BIOGENIDEC-2013BI067428

PATIENT
  Age: 23 Year
  Sex: Female

DRUGS (7)
  1. TECFIDERA [Suspect]
     Indication: PRODUCT USED FOR UNKNOWN INDICATION
     Route: 048
     Dates: start: 20130703, end: 20130709
  2. TECFIDERA [Suspect]
     Indication: PRODUCT USED FOR UNKNOWN INDICATION
     Route: 048
     Dates: start: 20130710
  3. VITAMIN B-12 [Concomitant]
  4. VITAMIN D 3 [Concomitant]
  5. OMEPRAZOLE [Concomitant]
  6. BACLOFEN [Concomitant]
  7. PROZAC [Concomitant]

REACTIONS (1)
  - Joint swelling [Not Recovered/Not Resolved]
